FAERS Safety Report 13023965 (Version 1)
Quarter: 2016Q4

REPORT INFORMATION
  Report Type: Spontaneous
  Country: US (occurrence: US)
  Receive Date: 20161213
  Receipt Date: 20161213
  Transmission Date: 20170207
  Serious: Yes (Other)
  Sender: FDA-Public Use
  Company Number: US-JNJFOC-20161208977

PATIENT
  Sex: Male

DRUGS (1)
  1. INVEGA TRINZA [Suspect]
     Active Substance: PALIPERIDONE PALMITATE
     Indication: DEVELOPMENTAL DELAY
     Route: 030

REACTIONS (5)
  - Dystonia [Unknown]
  - Off label use [Unknown]
  - Rhabdomyolysis [Unknown]
  - Product use issue [Unknown]
  - Drug administration error [Unknown]
